FAERS Safety Report 8144695-8 (Version None)
Quarter: 2012Q1

REPORT INFORMATION
  Report Type: 
  Country: None (occurrence: None)
  Receive Date: 20120217
  Receipt Date: 20120213
  Transmission Date: 20120608
  Serious: Yes (Other)
  Sender: FDA-Public Use
  Company Number: DE-PFIZER INC-2012038941

PATIENT
  Sex: Female

DRUGS (1)
  1. GENOTROPIN [Suspect]

REACTIONS (2)
  - INSULIN RESISTANCE [None]
  - POLYCYSTIC OVARIES [None]
